FAERS Safety Report 6240043-9 (Version None)
Quarter: 2009Q2

REPORT INFORMATION
  Report Type: 
  Country: None (occurrence: None)
  Receive Date: 20090619
  Receipt Date: 20090610
  Transmission Date: 20091009
  Serious: Yes (Hospitalization)
  Sender: FDA-Public Use
  Company Number: 000710

PATIENT
  Sex: Male
  Weight: 175.2 kg

DRUGS (15)
  1. ROTIGOTINE [Suspect]
     Indication: RESTLESS LEGS SYNDROME
     Dosage: (6 MG QD TRANSDERMAL), (4 MG QD TRANSDERMAL)
     Route: 062
     Dates: start: 20070101, end: 20080101
  2. ROTIGOTINE [Suspect]
     Indication: RESTLESS LEGS SYNDROME
     Dosage: (6 MG QD TRANSDERMAL), (4 MG QD TRANSDERMAL)
     Route: 062
     Dates: start: 20080101
  3. LISINOPRIL [Concomitant]
  4. TRIAMTERENE AND HYDROCHLOROTHIAZIDE [Concomitant]
  5. METOPROLOL SUCCINATE [Concomitant]
  6. ARICEPT [Concomitant]
  7. LOVASTATIN [Concomitant]
  8. GABAPENTIN [Concomitant]
  9. NAPROXEN [Concomitant]
  10. VITAMIN D [Concomitant]
  11. FOLIC ACID [Concomitant]
  12. MULTI-VITAMIN [Concomitant]
  13. OXYCODONE HCL [Concomitant]
  14. VITAMIN B NOS [Concomitant]
  15. VITAMIN B-12 [Concomitant]

REACTIONS (6)
  - ACCIDENT [None]
  - CONCUSSION [None]
  - FALL [None]
  - HEAD INJURY [None]
  - INSOMNIA [None]
  - SUBDURAL HAEMATOMA [None]
